FAERS Safety Report 6005496-X (Version None)
Quarter: 2008Q4

REPORT INFORMATION
  Report Type: 
  Country: None (occurrence: None)
  Receive Date: 20081217
  Receipt Date: 20081215
  Transmission Date: 20090506
  Serious: Yes (Life-Threatening, Hospitalization)
  Sender: FDA-Public Use
  Company Number: FR-WYE-G02784208

PATIENT
  Sex: Female

DRUGS (4)
  1. ADVIL LIQUI-GELS [Suspect]
     Indication: OSTEOARTHRITIS
     Dosage: 5 TO 6 TABLETS TOTAL DAILY
     Route: 048
     Dates: start: 20080901, end: 20081030
  2. HYTACAND [Concomitant]
     Dosage: UNKNOWN
     Route: 048
     Dates: start: 20030101
  3. KARDEGIC [Concomitant]
     Dosage: UNKNOWN
     Route: 048
     Dates: start: 20030101
  4. LERCAN [Concomitant]
     Dosage: UNKNOWN
     Route: 048
     Dates: start: 20030101

REACTIONS (6)
  - AGRANULOCYTOSIS [None]
  - BLISTER [None]
  - PRURITUS [None]
  - PSEUDOMONAL SEPSIS [None]
  - RASH PAPULAR [None]
  - TONSILLITIS [None]
